FAERS Safety Report 7962215-5 (Version None)
Quarter: 2011Q4

REPORT INFORMATION
  Report Type: 
  Country: None (occurrence: None)
  Receive Date: 20111207
  Receipt Date: 20111128
  Transmission Date: 20120403
  Serious: Yes (Other)
  Sender: FDA-Public Use
  Company Number: PHEH2011US010282

PATIENT
  Sex: Female

DRUGS (1)
  1. RECLAST [Suspect]
     Dosage: 5 MG, YEARLY
     Route: 042

REACTIONS (18)
  - HEARING DISABILITY [None]
  - CHILLS [None]
  - ABDOMINAL PAIN [None]
  - JOINT SWELLING [None]
  - PYREXIA [None]
  - BLOOD GLUCOSE INCREASED [None]
  - POLYARTHRITIS [None]
  - JOINT STIFFNESS [None]
  - DEHYDRATION [None]
  - GAIT DISTURBANCE [None]
  - DYSPHONIA [None]
  - PAIN IN EXTREMITY [None]
  - MYALGIA [None]
  - NAUSEA [None]
  - BONE PAIN [None]
  - DIZZINESS [None]
  - EYE DISORDER [None]
  - HEADACHE [None]
